FAERS Safety Report 10153809 (Version 13)
Quarter: 2016Q3

REPORT INFORMATION
  Report Type: Spontaneous
  Country: CA (occurrence: CA)
  Receive Date: 20140506
  Receipt Date: 20160921
  Transmission Date: 20161108
  Serious: Yes (Other)
  Sender: FDA-Public Use
  Company Number: CA-ROCHE-1392756

PATIENT
  Age: 65 Year
  Sex: Male

DRUGS (9)
  1. XOLAIR [Suspect]
     Active Substance: OMALIZUMAB
     Indication: ASTHMA
     Route: 058
     Dates: start: 20110818
  2. XOLAIR [Suspect]
     Active Substance: OMALIZUMAB
     Route: 058
     Dates: start: 20130212
  3. XOLAIR [Suspect]
     Active Substance: OMALIZUMAB
     Route: 058
     Dates: start: 20160405
  4. ADVAIR HFA [Concomitant]
     Active Substance: FLUTICASONE PROPIONATE\SALMETEROL XINAFOATE
     Indication: PRODUCT USED FOR UNKNOWN INDICATION
     Dosage: UNK
     Route: 065
  5. SALBUTAMOL [Concomitant]
     Active Substance: ALBUTEROL
     Indication: PRODUCT USED FOR UNKNOWN INDICATION
     Dosage: UNK
     Route: 065
  6. XOLAIR [Suspect]
     Active Substance: OMALIZUMAB
     Route: 058
     Dates: start: 20160517
  7. XOLAIR [Suspect]
     Active Substance: OMALIZUMAB
     Route: 058
     Dates: start: 20160601
  8. XOLAIR [Suspect]
     Active Substance: OMALIZUMAB
     Route: 058
     Dates: start: 20160715
  9. XOLAIR [Suspect]
     Active Substance: OMALIZUMAB
     Route: 058
     Dates: start: 20160812

REACTIONS (16)
  - Bronchitis [Recovered/Resolved]
  - Infection [Unknown]
  - Heart rate increased [Unknown]
  - Upper respiratory tract infection [Unknown]
  - Bronchopulmonary aspergillosis allergic [Unknown]
  - Lower respiratory tract infection [Unknown]
  - Hypotension [Unknown]
  - Nasopharyngitis [Unknown]
  - Influenza [Unknown]
  - Headache [Unknown]
  - Respiratory rate increased [Unknown]
  - Dyspnoea [Unknown]
  - Malaise [Unknown]
  - Asthma [Unknown]
  - Drug effect decreased [Unknown]
  - Lung infection [Unknown]

NARRATIVE: CASE EVENT DATE: 20120417
